FAERS Safety Report 6834792-9 (Version None)
Quarter: 2010Q3

REPORT INFORMATION
  Report Type: 
  Country: None (occurrence: None)
  Receive Date: 20100712
  Receipt Date: 20070421
  Transmission Date: 20110219
  Serious: No
  Sender: FDA-Public Use
  Company Number: US-PFIZER INC-2007032772

PATIENT
  Sex: Female
  Weight: 84.1 kg

DRUGS (5)
  1. CHANTIX [Suspect]
     Indication: SMOKING CESSATION THERAPY
     Dates: start: 20070413
  2. PREDNISONE [Concomitant]
  3. CELEBREX [Concomitant]
  4. SYNTHROID [Concomitant]
  5. COUMADIN [Concomitant]

REACTIONS (1)
  - VOMITING [None]
